FAERS Safety Report 8369689-9 (Version None)
Quarter: 2012Q2

REPORT INFORMATION
  Report Type: 
  Country: None (occurrence: None)
  Receive Date: 20120518
  Receipt Date: 20120509
  Transmission Date: 20120825
  Serious: Yes (Other)
  Sender: FDA-Public Use
  Company Number: US-GENZYME-FABR-1002507

PATIENT
  Sex: Male
  Weight: 82 kg

DRUGS (1)
  1. FABRAZYME [Suspect]
     Indication: FABRY'S DISEASE
     Dosage: 0.98 MG/KG, Q2W
     Route: 042

REACTIONS (4)
  - DEAFNESS UNILATERAL [None]
  - COGNITIVE DISORDER [None]
  - VERBIGERATION [None]
  - MIGRAINE [None]
